FAERS Safety Report 13358409 (Version 1)
Quarter: 2017Q1

REPORT INFORMATION
  Report Type: Spontaneous
  Country: NO (occurrence: NO)
  Receive Date: 20170322
  Receipt Date: 20170322
  Transmission Date: 20170429
  Serious: Yes (Hospitalization, Other)
  Sender: FDA-Public Use
  Company Number: NO-TEVA-749624ISR

PATIENT
  Age: 40 Year
  Sex: Male

DRUGS (5)
  1. FLUANXOL [Concomitant]
     Active Substance: FLUPENTIXOL
  2. RESVERATROL [Concomitant]
     Active Substance: RESVERATROL
  3. FINASTERIDE. [Suspect]
     Active Substance: FINASTERIDE
     Indication: ALOPECIA
     Dosage: 5 MILLIGRAM DAILY;
     Dates: start: 20130125, end: 20130818
  4. ALPHA LIPOIC ACID [Concomitant]
     Active Substance: .ALPHA.-LIPOIC ACID
  5. CIALIS [Concomitant]
     Active Substance: TADALAFIL
     Dosage: 5 MILLIGRAM DAILY;
     Route: 048
     Dates: start: 201609

REACTIONS (30)
  - Penile size reduced [Unknown]
  - Ejaculation disorder [Unknown]
  - Body fat disorder [Unknown]
  - Anosmia [Unknown]
  - Suicidal ideation [Unknown]
  - Infection susceptibility increased [Unknown]
  - Lid sulcus deepened [Unknown]
  - Fatigue [Unknown]
  - Vitiligo [Unknown]
  - Brain injury [Unknown]
  - Mental impairment [Unknown]
  - Adverse drug reaction [Unknown]
  - Breast disorder male [Unknown]
  - Skin irritation [Unknown]
  - Hypotonia [Unknown]
  - Formication [Unknown]
  - Off label use [Unknown]
  - Erythema [Unknown]
  - Loss of libido [Unknown]
  - Androgens abnormal [Unknown]
  - Visual acuity reduced [Unknown]
  - Abdominal discomfort [Unknown]
  - Tinnitus [Unknown]
  - Paraesthesia [Unknown]
  - Poisoning [Unknown]
  - Testicular disorder [Unknown]
  - Genital disorder male [Unknown]
  - Dry skin [Unknown]
  - Eczema [Unknown]
  - Anorgasmia [Unknown]

NARRATIVE: CASE EVENT DATE: 20130125
